FAERS Safety Report 5567862-6 (Version None)
Quarter: 2007Q4

REPORT INFORMATION
  Report Type: 
  Country: None (occurrence: None)
  Receive Date: 20071220
  Receipt Date: 20071210
  Transmission Date: 20080405
  Serious: Yes (Other)
  Sender: FDA-Public Use
  Company Number: ES-ELI_LILLY_AND_COMPANY-ES200712002095

PATIENT
  Sex: Male

DRUGS (1)
  1. OLANZAPINE [Suspect]
     Dates: start: 20040101

REACTIONS (1)
  - ATRIOVENTRICULAR BLOCK SECOND DEGREE [None]
